FAERS Safety Report 4769114-0 (Version None)
Quarter: 2005Q3

REPORT INFORMATION
  Report Type: 
  Country: None (occurrence: None)
  Receive Date: 20050912
  Receipt Date: 20041201
  Transmission Date: 20060218
  Serious: Yes (Hospitalization)
  Sender: FDA-Public Use
  Company Number: 2004-BP-13074BP

PATIENT
  Age: 26 Year
  Sex: Male

DRUGS (2)
  1. VIRAMUNE [Suspect]
     Indication: HIV INFECTION
     Dosage: 400 MG, PO
     Route: 048
     Dates: start: 20041101, end: 20041104
  2. VIRAMUNE [Suspect]
     Indication: HIV INFECTION
     Dosage: 400 MG, PO
     Route: 048
     Dates: start: 20041101

REACTIONS (3)
  - INFLUENZA LIKE ILLNESS [None]
  - LIVER FUNCTION TEST ABNORMAL [None]
  - STEVENS-JOHNSON SYNDROME [None]
